FAERS Safety Report 10151415 (Version 1)
Quarter: 2014Q2

REPORT INFORMATION
  Report Type: Spontaneous
  Country: JP (occurrence: JP)
  Receive Date: 20140503
  Receipt Date: 20140503
  Transmission Date: 20141212
  Serious: Yes (Hospitalization)
  Sender: FDA-Public Use
  Company Number: PHHY2014JP052358

PATIENT
  Age: 60 Year
  Sex: Female

DRUGS (4)
  1. NEORAL [Suspect]
     Indication: RENAL TRANSPLANT
     Route: 048
  2. LIPITOR [Interacting]
     Indication: HYPERLIPIDAEMIA
     Route: 048
  3. PREDNISOLONE [Concomitant]
     Indication: RENAL TRANSPLANT
  4. BREDININ [Concomitant]
     Indication: RENAL TRANSPLANT
     Route: 048

REACTIONS (10)
  - Rhabdomyolysis [Recovering/Resolving]
  - Memory impairment [Unknown]
  - Performance status decreased [Unknown]
  - Altered state of consciousness [Recovering/Resolving]
  - Hyponatraemia [Recovered/Resolved]
  - Blood chloride decreased [Unknown]
  - Blood creatine phosphokinase increased [Unknown]
  - Dehydration [Unknown]
  - Drug level increased [Unknown]
  - Drug interaction [Unknown]
